FAERS Safety Report 10331812 (Version 2)
Quarter: 2017Q3

REPORT INFORMATION
  Report Type: Spontaneous
  Country: US (occurrence: US)
  Receive Date: 20140722
  Receipt Date: 20170929
  Transmission Date: 20171127
  Serious: No
  Sender: FDA-Public Use
  Company Number: US-ASTRAZENECA-2014SE52733

PATIENT
  Age: 85 Year
  Sex: Female
  Weight: 78 kg

DRUGS (5)
  1. NEXIUM 24HR [Suspect]
     Active Substance: ESOMEPRAZOLE MAGNESIUM
     Indication: LOWER GASTROINTESTINAL HAEMORRHAGE
     Dosage: UNKNOWN, DAILY
     Route: 048
  2. NEXIUM 24HR [Suspect]
     Active Substance: ESOMEPRAZOLE MAGNESIUM
     Indication: HAEMORRHAGE
     Route: 048
  3. NEXIUM 24HR [Suspect]
     Active Substance: ESOMEPRAZOLE MAGNESIUM
     Indication: LOWER GASTROINTESTINAL HAEMORRHAGE
     Route: 048
  4. ZOLOFT [Concomitant]
     Active Substance: SERTRALINE HYDROCHLORIDE
     Indication: DEPRESSION
  5. NEXIUM 24HR [Suspect]
     Active Substance: ESOMEPRAZOLE MAGNESIUM
     Indication: HAEMORRHAGE
     Dosage: UNKNOWN, DAILY
     Route: 048

REACTIONS (5)
  - Product quality issue [Unknown]
  - Product storage error [Unknown]
  - Intentional product misuse [Unknown]
  - Poor quality drug administered [Unknown]
  - Myalgia [Not Recovered/Not Resolved]
